FAERS Safety Report 4900304-X (Version None)
Quarter: 2006Q1

REPORT INFORMATION
  Report Type: 
  Country: None (occurrence: None)
  Receive Date: 20060203
  Receipt Date: 20051126
  Transmission Date: 20060701
  Serious: Yes (Hospitalization)
  Sender: FDA-Public Use
  Company Number: HQWYE733629NOV05

PATIENT
  Sex: Female

DRUGS (9)
  1. ENBREL [Suspect]
     Indication: RHEUMATOID ARTHRITIS
     Route: 058
     Dates: start: 20050613, end: 20051125
  2. BUCILLAMINE [Concomitant]
     Dosage: DOSE AND FREQUENCY NOT SPECIFIED
     Route: 048
  3. SODIUM AUROTHIOMALATE [Concomitant]
  4. PREDNISOLONE [Concomitant]
  5. ETODOLAC [Concomitant]
  6. THEOPHYLLINE [Concomitant]
  7. MONTELUKAST SODIUM [Concomitant]
  8. NATEGLINIDE [Concomitant]
  9. DICLOFENAC SODIUM [Concomitant]

REACTIONS (4)
  - LUNG DISORDER [None]
  - LUNG NEOPLASM MALIGNANT [None]
  - PNEUMONIA [None]
  - PRODUCTIVE COUGH [None]
